FAERS Safety Report 12765625 (Version 1)
Quarter: 2016Q3

REPORT INFORMATION
  Report Type: Spontaneous
  Country: US (occurrence: US)
  Receive Date: 20160915
  Receipt Date: 20160915
  Transmission Date: 20161109
  Serious: No
  Sender: FDA-Public Use
  Company Number: None

PATIENT
  Age: 59 Year
  Sex: Female

DRUGS (1)
  1. FORTEO [Suspect]
     Active Substance: TERIPARATIDE
     Indication: OSTEOPOROSIS
     Dosage: FORTEO 20MCG
     Route: 058
     Dates: start: 20160503

REACTIONS (3)
  - Pruritus [None]
  - Spinal disorder [None]
  - Dizziness [None]

NARRATIVE: CASE EVENT DATE: 20160718
